FAERS Safety Report 4989020-6 (Version None)
Quarter: 2006Q2

REPORT INFORMATION
  Report Type: 
  Country: None (occurrence: None)
  Receive Date: 20060425
  Receipt Date: 20060418
  Transmission Date: 20061013
  Serious: Yes (Other)
  Sender: FDA-Public Use
  Company Number: HQWYE873719APR06

PATIENT
  Sex: Male

DRUGS (5)
  1. RAPAMUNE [Suspect]
     Indication: CHRONIC ALLOGRAFT NEPHROPATHY
     Dosage: SEE IMAGE
  2. RAPAMUNE [Suspect]
     Indication: KIDNEY TRANSPLANT REJECTION
     Dosage: SEE IMAGE
  3. AZATHIOPRINE [Concomitant]
  4. PREDNISONE TAB [Concomitant]
  5. CYCLOSPORINE [Concomitant]

REACTIONS (3)
  - COMPLICATIONS OF TRANSPLANTED KIDNEY [None]
  - NEPHROTIC SYNDROME [None]
  - RENAL IMPAIRMENT [None]
